FAERS Safety Report 5279341-4 (Version None)
Quarter: 2007Q1

REPORT INFORMATION
  Report Type: 
  Country: None (occurrence: None)
  Receive Date: 20070328
  Receipt Date: 20060228
  Transmission Date: 20070707
  Serious: No
  Sender: FDA-Public Use
  Company Number: US-AMGEN-US170547

PATIENT
  Sex: Male
  Weight: 87.6 kg

DRUGS (5)
  1. NEULASTA [Suspect]
     Indication: NEUTROPENIA
     Route: 058
     Dates: start: 20060130, end: 20060220
  2. NEUPOGEN [Suspect]
     Indication: NEUTROPENIA
     Route: 058
     Dates: start: 20050308, end: 20060310
  3. PREDNISONE [Concomitant]
     Route: 065
  4. ADVIL [Concomitant]
     Route: 048
  5. DARVOCET-N 100 [Concomitant]
     Route: 065

REACTIONS (6)
  - BONE PAIN [None]
  - FEELING ABNORMAL [None]
  - NAUSEA [None]
  - NEPHROLITHIASIS [None]
  - TREMOR [None]
  - VOMITING [None]
